FAERS Safety Report 7633835 (Version 6)
Quarter: 2014Q2

REPORT INFORMATION
  Report Type: Spontaneous
  Country: US (occurrence: None)
  Receive Date: 20100916
  Receipt Date: 20140609
  Transmission Date: 20141212
  Serious: Yes (Death, Hospitalization, Other)
  Sender: FDA-Public Use
  Company Number: 688939

PATIENT
  Age: 60 Year
  Sex: Female
  Weight: 90.7 kg

DRUGS (5)
  1. NIPENT [Suspect]
     Indication: CHRONIC LYMPHOCYTIC LEUKAEMIA
     Dosage: 8 MG, UNKNOWN
     Dates: start: 20100830, end: 20100830
  2. CYCLOPHOSPHAMIDE [Suspect]
     Indication: CHRONIC LYMPHOCYTIC LEUKAEMIA
     Dosage: 1200 MG, UNKNOWN
     Dates: start: 20100830, end: 20100830
  3. RITUXIMAB [Suspect]
     Indication: CHRONIC LYMPHOCYTIC LEUKAEMIA
     Dosage: 750 MG, UNKNOWN
     Dates: start: 20100830, end: 20100830
  4. EMEND /01627301/ [Suspect]
     Indication: NAUSEA
  5. ONDANSETRON [Suspect]
     Indication: NAUSEA

REACTIONS (28)
  - Pulseless electrical activity [None]
  - Acute pulmonary oedema [None]
  - Atelectasis [None]
  - Pleural effusion [None]
  - Capillary leak syndrome [None]
  - Nausea [None]
  - Splenomegaly [None]
  - Pericardial effusion [None]
  - Left ventricular hypertrophy [None]
  - Pulmonary congestion [None]
  - Hepatomegaly [None]
  - Rib fracture [None]
  - Autoimmune haemolytic anaemia [None]
  - Blood creatinine increased [None]
  - Headache [None]
  - Blood pressure increased [None]
  - Chronic lymphocytic leukaemia recurrent [None]
  - Right ventricular hypertrophy [None]
  - Gastrointestinal stromal tumour [None]
  - Uterine polyp [None]
  - Renal cyst [None]
  - Lobar pneumonia [None]
  - Staphylococcus test positive [None]
  - Lung infection [None]
  - Urinary tract infection [None]
  - Diarrhoea [None]
  - Cardiac arrest [None]
  - Sinus bradycardia [None]
